FAERS Safety Report 7829144-9 (Version None)
Quarter: 2011Q4

REPORT INFORMATION
  Report Type: 
  Country: None (occurrence: None)
  Receive Date: 20111020
  Receipt Date: 20111007
  Transmission Date: 20120403
  Serious: Yes (Hospitalization)
  Sender: FDA-Public Use
  Company Number: PHHY2011US90048

PATIENT
  Age: 60 Year
  Sex: Male

DRUGS (4)
  1. ASPIRIN [Suspect]
  2. METFORMIN HCL [Suspect]
  3. LEVOTHYROXINE SODIUM [Suspect]
  4. VALSARTAN/HYDROCHLOROTHIAZIDE [Suspect]

REACTIONS (24)
  - PROTEIN TOTAL INCREASED [None]
  - PROTEINURIA [None]
  - BLOOD IMMUNOGLOBULIN G DECREASED [None]
  - OEDEMA PERIPHERAL [None]
  - BLOOD URINE PRESENT [None]
  - CRYOGLOBULINAEMIA [None]
  - JOINT SWELLING [None]
  - RED BLOOD CELL SEDIMENTATION RATE INCREASED [None]
  - BLOOD IMMUNOGLOBULIN M INCREASED [None]
  - HYPERTENSION [None]
  - RASH [None]
  - GLOMERULONEPHRITIS MEMBRANOPROLIFERATIVE [None]
  - GLOMERULOSCLEROSIS [None]
  - BLOOD CREATININE INCREASED [None]
  - RHEUMATOID FACTOR DECREASED [None]
  - OEDEMA [None]
  - DIASTOLIC DYSFUNCTION [None]
  - ALBUMINURIA [None]
  - PARAPROTEINAEMIA [None]
  - LEFT VENTRICULAR HYPERTROPHY [None]
  - POLYARTHRITIS [None]
  - BLOOD UREA INCREASED [None]
  - COMPLEMENT FACTOR DECREASED [None]
  - DYSPNOEA [None]
